FAERS Safety Report 6037689-X (Version None)
Quarter: 2009Q1

REPORT INFORMATION
  Report Type: 
  Country: None (occurrence: None)
  Receive Date: 20090114
  Receipt Date: 20090107
  Transmission Date: 20090719
  Serious: Yes (Death)
  Sender: FDA-Public Use
  Company Number: IT-AMGEN-UK327225

PATIENT
  Sex: Male
  Weight: 56 kg

DRUGS (12)
  1. NEULASTA [Suspect]
     Indication: DRUG USE FOR UNKNOWN INDICATION
     Dates: start: 20081106, end: 20081116
  2. LEVOFLOXACIN [Concomitant]
     Route: 048
     Dates: start: 20081203, end: 20081206
  3. TAZOCIN (LEDERLE) [Concomitant]
     Route: 042
     Dates: start: 20081207, end: 20081208
  4. OMEPRAZOLE [Concomitant]
     Route: 048
     Dates: start: 20081206, end: 20081208
  5. DELTACORTENE [Concomitant]
     Route: 048
     Dates: start: 20081105, end: 20081208
  6. LASIX [Concomitant]
     Route: 048
     Dates: start: 20081202, end: 20081208
  7. TRANEXAMIC ACID [Concomitant]
     Route: 048
     Dates: start: 20081201, end: 20081208
  8. SPORANOX [Concomitant]
     Route: 048
     Dates: start: 20081203, end: 20081208
  9. DILATREND [Concomitant]
     Route: 048
     Dates: start: 20081204, end: 20081208
  10. TRIATEC [Concomitant]
     Route: 048
     Dates: end: 20081208
  11. CEFIXIME CHEWABLE [Concomitant]
     Route: 048
     Dates: start: 20081118, end: 20081203
  12. ZYLORIC [Concomitant]
     Route: 048
     Dates: start: 20081203, end: 20081208

REACTIONS (6)
  - HYPOXIA [None]
  - LOSS OF CONSCIOUSNESS [None]
  - LUNG INFILTRATION [None]
  - PLEURAL EFFUSION [None]
  - PYREXIA [None]
  - SPLENOMEGALY [None]
